FAERS Safety Report 7739463-2 (Version None)
Quarter: 2011Q3

REPORT INFORMATION
  Report Type: 
  Country: None (occurrence: None)
  Receive Date: 20110909
  Receipt Date: 20110902
  Transmission Date: 20111222
  Serious: Yes (Death)
  Sender: FDA-Public Use
  Company Number: VE-AMGEN-VENSP2011045451

PATIENT
  Age: 73 Year
  Sex: Male
  Weight: 100 kg

DRUGS (10)
  1. LERCADIP                           /01366401/ [Concomitant]
     Indication: HYPERTENSION
     Dosage: 20 MG, 1X/DAY
     Route: 048
     Dates: start: 20060919
  2. SIMVASTATIN [Concomitant]
     Indication: MYOCARDIAL ISCHAEMIA
  3. CARVEDILOL [Concomitant]
     Indication: HYPERTENSION
     Dosage: 12.5 MG, 1X/DAY
     Route: 048
     Dates: start: 20060919
  4. LERCADIP                           /01366401/ [Concomitant]
     Indication: MYOCARDIAL ISCHAEMIA
  5. SIMVASTATIN [Concomitant]
     Indication: HYPERTENSION
     Dosage: 80 MG, 1X/DAY
     Route: 048
     Dates: start: 20060919
  6. CARVEDILOL [Concomitant]
     Indication: MYOCARDIAL ISCHAEMIA
  7. ENBREL [Suspect]
     Indication: RHEUMATOID ARTHRITIS
     Dosage: 25 MG, 2X/WEEK
     Route: 058
     Dates: start: 20071128, end: 20090808
  8. FOLIC ACID [Concomitant]
     Indication: RHEUMATOID ARTHRITIS
     Dosage: 1 MG, 1X/DAY
     Route: 048
     Dates: start: 20071128, end: 20090908
  9. NAPROXEN [Concomitant]
     Indication: ANALGESIC THERAPY
     Dosage: 275 MG, 1X/DAY
     Route: 048
     Dates: start: 20071128, end: 20090908
  10. METHOTREXATE [Concomitant]
     Indication: RHEUMATOID ARTHRITIS
     Dosage: 12.5 MG, 1X/DAY
     Route: 030
     Dates: start: 20071128, end: 20090908

REACTIONS (1)
  - NEOPLASM MALIGNANT [None]
